FAERS Safety Report 9869313 (Version 1)
Quarter: 2014Q1

REPORT INFORMATION
  Report Type: Report from Study
  Country: US (occurrence: US)
  Receive Date: 20140205
  Receipt Date: 20140205
  Transmission Date: 20141002
  Serious: Yes (Hospitalization)
  Sender: FDA-Public Use
  Company Number: PHEH2014US002366

PATIENT
  Age: 2 Year
  Sex: Female

DRUGS (2)
  1. TOBI [Suspect]
     Indication: TRACHEITIS
     Dosage: 300 MG, BID
     Route: 055
     Dates: start: 20131101
  2. TOBI [Suspect]
     Indication: OFF LABEL USE

REACTIONS (3)
  - Respiratory syncytial virus test positive [Unknown]
  - Influenza like illness [Recovered/Resolved]
  - Nasopharyngitis [Recovered/Resolved]
